FAERS Safety Report 25733642 (Version 1)
Quarter: 2025Q3

REPORT INFORMATION
  Report Type: Report from Study
  Country: GB (occurrence: GB)
  Receive Date: 20250828
  Receipt Date: 20250828
  Transmission Date: 20251021
  Serious: Yes (Other)
  Sender: ALEXION PHARMACEUTICALS
  Company Number: GB-AstraZeneca-CH-00935232A

PATIENT
  Age: 79 Year
  Sex: Female

DRUGS (1)
  1. ULTOMIRIS [Suspect]
     Active Substance: RAVULIZUMAB-CWVZ
     Indication: Paroxysmal nocturnal haemoglobinuria

REACTIONS (5)
  - Cerebrovascular accident [Unknown]
  - Lower respiratory tract infection [Recovered/Resolved]
  - Blindness unilateral [Unknown]
  - Migraine [Not Recovered/Not Resolved]
  - C-reactive protein increased [Unknown]
